FAERS Safety Report 11673500 (Version 1)
Quarter: 2015Q4

REPORT INFORMATION
  Report Type: Spontaneous
  Country: US (occurrence: US)
  Receive Date: 20151027
  Receipt Date: 20151027
  Transmission Date: 20160304
  Serious: No
  Sender: FDA-Public Use
  Company Number: US-ELI_LILLY_AND_COMPANY-US201005006887

PATIENT
  Sex: Female

DRUGS (5)
  1. LEVOTHYROXINE. [Concomitant]
     Active Substance: LEVOTHYROXINE
     Indication: THYROID DISORDER
     Dosage: 75 MG, UNK
  2. FORTEO [Suspect]
     Active Substance: TERIPARATIDE
     Indication: OSTEOPOROSIS
     Dosage: 20 UG, DAILY (1/D)
     Dates: start: 20091209, end: 20100430
  3. VITAMIN D [Concomitant]
     Active Substance: CHOLECALCIFEROL
     Dosage: 2 D/F, DAILY (1/D)
  4. CALCIUM [Concomitant]
     Active Substance: CALCIUM
     Dosage: 3 D/F, DAILY (1/D)
  5. ISOTONIX OPC-3 [Concomitant]
     Active Substance: HERBALS

REACTIONS (7)
  - Computerised tomogram thorax abnormal [Unknown]
  - Fatigue [Unknown]
  - Interstitial lung disease [Unknown]
  - Pneumonia [Unknown]
  - Pulmonary mass [Unknown]
  - Hypoxia [Unknown]
  - Cough [Unknown]

NARRATIVE: CASE EVENT DATE: 2010
